FAERS Safety Report 4552120-9 (Version None)
Quarter: 2005Q1

REPORT INFORMATION
  Report Type: 
  Country: None (occurrence: None)
  Receive Date: 20050112
  Receipt Date: 20050104
  Transmission Date: 20050727
  Serious: Yes (Hospitalization)
  Sender: FDA-Public Use
  Company Number: 230230M04USA

PATIENT
  Age: 56 Year
  Sex: Female

DRUGS (6)
  1. REBIF [Suspect]
     Indication: MULTIPLE SCLEROSIS
     Dosage: 44 MCG, 3 IN 1 WEEKS,
     Dates: start: 20020301, end: 20030501
  2. DILANTIN [Concomitant]
  3. VITAMIN C (ASCORBIC ACID) [Concomitant]
  4. FOLIC ACID [Concomitant]
  5. VALPROIC ACID [Concomitant]
  6. BACLOFEN [Concomitant]

REACTIONS (8)
  - ACUTE RESPIRATORY FAILURE [None]
  - ALANINE AMINOTRANSFERASE INCREASED [None]
  - ASPARTATE AMINOTRANSFERASE INCREASED [None]
  - ASTHENIA [None]
  - CHROMATURIA [None]
  - GRAND MAL CONVULSION [None]
  - PULMONARY HYPERTENSION [None]
  - SKIN HYPERPIGMENTATION [None]
